FAERS Safety Report 9052736 (Version 1)
Quarter: 2013Q1

REPORT INFORMATION
  Report Type: Spontaneous
  Country: DE (occurrence: DE)
  Receive Date: 20130207
  Receipt Date: 20130207
  Transmission Date: 20140127
  Serious: Yes (Other)
  Sender: FDA-Public Use
  Company Number: DE-JNJFOC-20130202929

PATIENT
  Age: 85 None
  Sex: Female
  Weight: 53 kg

DRUGS (6)
  1. XARELTO [Suspect]
     Indication: CEREBROVASCULAR ACCIDENT PROPHYLAXIS
     Route: 048
     Dates: start: 20120507, end: 20121005
  2. XARELTO [Suspect]
     Indication: ATRIAL FIBRILLATION
     Route: 048
     Dates: start: 20120507, end: 20121005
  3. TORASEMID [Concomitant]
     Route: 048
  4. ARLEVERT [Concomitant]
     Route: 048
  5. L-THYROXIN [Concomitant]
     Route: 048
  6. METOPROLOL [Concomitant]
     Route: 048

REACTIONS (3)
  - Haemorrhage [Recovered/Resolved]
  - Excoriation [Recovered/Resolved]
  - Fall [Recovered/Resolved]
